FAERS Safety Report 14717670 (Version 4)
Quarter: 2020Q1

REPORT INFORMATION
  Report Type: Spontaneous
  Country: US (occurrence: US)
  Receive Date: 20180404
  Receipt Date: 20200312
  Transmission Date: 20200409
  Serious: No
  Sender: FDA-Public Use
  Company Number: US-SA-2018SA021492

PATIENT
  Age: 22 Year
  Sex: Female

DRUGS (1)
  1. DUPIXENT [Suspect]
     Active Substance: DUPILUMAB
     Indication: DERMATITIS ATOPIC
     Dosage: 300 MG,QOW
     Route: 058
     Dates: start: 20171023, end: 20200302

REACTIONS (10)
  - Hyperhidrosis [Unknown]
  - Eczema [Unknown]
  - Hot flush [Unknown]
  - Pruritus [Unknown]
  - Feeling of body temperature change [Unknown]
  - Chills [Unknown]
  - Conjunctivitis [Unknown]
  - Erythema [Unknown]
  - Hyperhidrosis [Unknown]
  - Alopecia [Unknown]

NARRATIVE: CASE EVENT DATE: 201809
